FAERS Safety Report 23820636 (Version 1)
Quarter: 2024Q2

REPORT INFORMATION
  Report Type: Report from Study
  Country: IT (occurrence: IT)
  Receive Date: 20240506
  Receipt Date: 20240506
  Transmission Date: 20240715
  Serious: Yes (Hospitalization)
  Sender: FDA-Public Use
  Company Number: None

PATIENT
  Age: 6 Year
  Sex: Female
  Weight: 26 kg

DRUGS (4)
  1. METHOTREXATE [Suspect]
     Active Substance: METHOTREXATE
     Indication: Product used for unknown indication
     Dosage: MTX 50MG IN 30^, MTX 375 MG IN 23HOURS AND 30^/ TEVA: METHOTREXATE TEVA
     Route: 042
     Dates: start: 20231111, end: 20231112
  2. ONCASPAR [Suspect]
     Active Substance: PEGASPARGASE
     Indication: Product used for unknown indication
     Dosage: 850 UI
     Route: 042
     Dates: start: 20231113
  3. VINCRISTINE [Suspect]
     Active Substance: VINCRISTINE
     Indication: Product used for unknown indication
     Dosage: TWO ADMINISTRATIONS OF 1.3 MG, 1 DAY 11 AND 1 DAY 13/ TEVA ITALIA
     Route: 042
     Dates: start: 20231111, end: 20231113
  4. CYTARABINE [Suspect]
     Active Substance: CYTARABINE
     Indication: Product used for unknown indication
     Dosage: TWO DOSES OF 1700 MG/ ACCORD
     Route: 042
     Dates: start: 20231111, end: 20231111

REACTIONS (2)
  - Mucosal inflammation [Recovering/Resolving]
  - Febrile bone marrow aplasia [Recovering/Resolving]

NARRATIVE: CASE EVENT DATE: 20231119
